FAERS Safety Report 17271738 (Version 1)
Quarter: 2020Q1

REPORT INFORMATION
  Report Type: Spontaneous
  Country: US (occurrence: US)
  Receive Date: 20191223
  Receipt Date: 20191223
  Transmission Date: 20200409
  Serious: Yes (Death, Hospitalization)
  Sender: FDA-Public Use
  Company Number: None

PATIENT
  Age: 53 Year
  Sex: Female
  Weight: 165.11 kg

DRUGS (1)
  1. PALBOCICLIB (PALBOCICLIB 125MG CAP, ORAL) [Suspect]
     Active Substance: PALBOCICLIB
     Route: 048
     Dates: start: 20171012

REACTIONS (8)
  - Cellulitis [None]
  - Fatigue [None]
  - Diarrhoea [None]
  - Pleural effusion [None]
  - Respiratory failure [None]
  - Pulmonary embolism [None]
  - Treatment noncompliance [None]
  - Pneumonia [None]

NARRATIVE: CASE EVENT DATE: 20190101
